FAERS Safety Report 8285948 (Version 2)
Quarter: 2012Q4

REPORT INFORMATION
  Report Type: 
  Country: US (occurrence: US)
  Receive Date: 20111213
  Receipt Date: 20121113
  Transmission Date: 20130627
  Serious: No
  Sender: FDA-Public Use
  Company Number: US-AMGEN-USASP2011051481

PATIENT
  Age: 56 Year
  Sex: Male
  Weight: 58.05 kg

DRUGS (10)
  1. ARANESP [Suspect]
     Indication: ANAEMIA OF MALIGNANT DISEASE
     Dosage: 100 mug, UNK
     Route: 058
     Dates: start: 20110928, end: 20110928
  2. NEULASTA [Suspect]
     Indication: CHEMOTHERAPY
     Dates: start: 20110804
  3. CARBOPLATIN [Concomitant]
  4. GEMZAR [Concomitant]
  5. VP-16 [Concomitant]
  6. TIGAN [Concomitant]
  7. DECADRON                           /00016001/ [Concomitant]
  8. ZANTAC [Concomitant]
  9. CALCIUM [Concomitant]
  10. MAGNESIUM [Concomitant]

REACTIONS (8)
  - Dermatitis [Recovered/Resolved]
  - Skin irritation [Unknown]
  - Dry skin [Unknown]
  - Skin exfoliation [Unknown]
  - Skin burning sensation [Recovered/Resolved]
  - Eyelid oedema [Unknown]
  - Skin swelling [Recovered/Resolved]
  - Erythema [Recovered/Resolved]
